FAERS Safety Report 6096540-2 (Version None)
Quarter: 2009Q1

REPORT INFORMATION
  Report Type: 
  Country: None (occurrence: None)
  Receive Date: 20090225
  Receipt Date: 20090225
  Transmission Date: 20090719
  Serious: No
  Sender: FDA-Public Use
  Company Number: None

PATIENT
  Age: 78 Year
  Sex: Female
  Weight: 82.1011 kg

DRUGS (1)
  1. LIBRAX [Suspect]
     Indication: IRRITABLE BOWEL SYNDROME
     Dosage: 5 - 2.5 MG 3 X A DAY
     Dates: start: 20090128, end: 20090129

REACTIONS (7)
  - ASTHENIA [None]
  - DIARRHOEA [None]
  - DIZZINESS [None]
  - GASTROINTESTINAL PAIN [None]
  - HEADACHE [None]
  - MALAISE [None]
  - VOMITING [None]
